FAERS Safety Report 7032625-1 (Version None)
Quarter: 2010Q4

REPORT INFORMATION
  Report Type: 
  Country: None (occurrence: None)
  Receive Date: 20101007
  Receipt Date: 20100930
  Transmission Date: 20110411
  Serious: Yes (Hospitalization)
  Sender: FDA-Public Use
  Company Number: CO-ROCHE-730252

PATIENT
  Sex: Female

DRUGS (1)
  1. CELLCEPT [Suspect]
     Indication: DERMATOMYOSITIS
     Dosage: FREQUENCY REPORTED AS: EVERY DAY (QD)
     Route: 048
     Dates: start: 20100528

REACTIONS (1)
  - EXTREMITY NECROSIS [None]
